FAERS Safety Report 8999340 (Version 1)
Quarter: 2013Q1

REPORT INFORMATION
  Report Type: Spontaneous
  Country: US (occurrence: US)
  Receive Date: 20130103
  Receipt Date: 20130103
  Transmission Date: 20140127
  Serious: Yes (Other)
  Sender: FDA-Public Use
  Company Number: US-JNJFOC-20121212474

PATIENT
  Age: 18 Year
  Sex: Male

DRUGS (2)
  1. LISTERINE MOUTHWASH [Suspect]
     Indication: PRODUCT USED FOR UNKNOWN INDICATION
     Dosage: CAP
     Route: 048
  2. OMEPRAZOLE [Concomitant]
     Indication: GASTROOESOPHAGEAL REFLUX DISEASE
     Dosage: SINCE 4-5 YEARS
     Route: 065

REACTIONS (4)
  - Sjogren^s syndrome [Not Recovered/Not Resolved]
  - Oral discomfort [Not Recovered/Not Resolved]
  - Wrong technique in drug usage process [Unknown]
  - Expired drug administered [Unknown]
